FAERS Safety Report 9218718 (Version 1)
Quarter: 2013Q2

REPORT INFORMATION
  Report Type: Spontaneous
  Country: GB (occurrence: GB)
  Receive Date: 20130409
  Receipt Date: 20130409
  Transmission Date: 20140414
  Serious: Yes (Hospitalization)
  Sender: FDA-Public Use
  Company Number: GB-GENZYME-FABR-1003157

PATIENT
  Age: 13 Year
  Sex: Male
  Weight: 37.1 kg

DRUGS (1)
  1. FABRAZYME [Suspect]
     Indication: FABRY^S DISEASE
     Dosage: 0.94 MG/KG, Q2W
     Route: 042
     Dates: start: 201301, end: 20130329

REACTIONS (5)
  - Device related infection [Unknown]
  - Flushing [Unknown]
  - Abdominal pain upper [Unknown]
  - Pyrexia [Unknown]
  - Chills [Unknown]
